FAERS Safety Report 5577323-6 (Version None)
Quarter: 2007Q4

REPORT INFORMATION
  Report Type: 
  Country: None (occurrence: None)
  Receive Date: 20071228
  Receipt Date: 20071217
  Transmission Date: 20080405
  Serious: Yes (Other)
  Sender: FDA-Public Use
  Company Number: GB-PFIZER INC-2007100642

PATIENT
  Sex: Male
  Weight: 88.9 kg

DRUGS (12)
  1. CHANTIX [Suspect]
     Indication: SMOKING CESSATION THERAPY
     Route: 048
     Dates: start: 20070914, end: 20070101
  2. ALL OTHER THERAPEUTIC PRODUCTS [Concomitant]
     Route: 048
  3. ACETAMINOPHEN [Concomitant]
     Route: 048
  4. ACETYLSALICYLIC ACID SRT [Concomitant]
     Route: 048
  5. ISOSORBIDE MONONITRATE [Concomitant]
     Route: 048
  6. NITROLINGUAL [Concomitant]
  7. NICORANDIL [Concomitant]
     Route: 048
  8. OMEPRAZOLE [Concomitant]
     Route: 048
  9. ATORVASTATIN [Concomitant]
     Route: 048
  10. RAMIPRIL [Concomitant]
     Route: 048
  11. ATENOLOL [Concomitant]
     Route: 048
  12. GLUCOSAMINE SULFATE [Concomitant]

REACTIONS (21)
  - ABDOMINAL DISTENSION [None]
  - ABNORMAL DREAMS [None]
  - ANOREXIA [None]
  - ASTHENIA [None]
  - BACK PAIN [None]
  - COGNITIVE DISORDER [None]
  - CONSTIPATION [None]
  - DYSGEUSIA [None]
  - FATIGUE [None]
  - FEELING COLD [None]
  - FLATULENCE [None]
  - HEADACHE [None]
  - INSOMNIA [None]
  - JOINT STIFFNESS [None]
  - MALAISE [None]
  - MEMORY IMPAIRMENT [None]
  - MUSCLE SPASMS [None]
  - NAUSEA [None]
  - POLYURIA [None]
  - SOMNOLENCE [None]
  - SPEECH DISORDER [None]
